FAERS Safety Report 4398077-5 (Version None)
Quarter: 2004Q3

REPORT INFORMATION
  Report Type: 
  Country: None (occurrence: None)
  Receive Date: 20040714
  Receipt Date: 20040714
  Transmission Date: 20050211
  Serious: No
  Sender: FDA-Public Use
  Company Number: None

PATIENT
  Sex: Female
  Weight: 58.9676 kg

DRUGS (3)
  1. COLD EEZE 1X 3.36% QUIGLEY [Suspect]
     Indication: NASAL CONGESTION
     Dosage: 1 DOSE ONCE NASAL
     Route: 045
     Dates: start: 20040711, end: 20040711
  2. COLD EEZE 1X 3.36% QUIGLEY [Suspect]
     Indication: NASOPHARYNGITIS
     Dosage: 1 DOSE ONCE NASAL
     Route: 045
     Dates: start: 20040711, end: 20040711
  3. DIMETAPP COLD AND ALLERGY [Concomitant]

REACTIONS (6)
  - EYE IRRITATION [None]
  - NASAL DISCOMFORT [None]
  - OEDEMA [None]
  - RESPIRATION ABNORMAL [None]
  - RESPIRATORY DISORDER [None]
  - THROAT IRRITATION [None]
